FAERS Safety Report 19473128 (Version 1)
Quarter: 2021Q2

REPORT INFORMATION
  Report Type: Spontaneous
  Country: FR (occurrence: FR)
  Receive Date: 20210629
  Receipt Date: 20210629
  Transmission Date: 20210717
  Serious: Yes (Life-Threatening)
  Sender: FDA-Public Use
  Company Number: FR-BAYER-2021-161591

PATIENT
  Age: 72 Year
  Sex: Male
  Weight: 72.6 kg

DRUGS (24)
  1. CIPROFLOXACIN. [Suspect]
     Active Substance: CIPROFLOXACIN
     Indication: PAROTID GLAND ENLARGEMENT
     Dosage: UNK
     Route: 042
     Dates: start: 20210409, end: 20210423
  2. CELLULOSE MICROCRYSTALLINE [Concomitant]
     Dosage: UNK
  3. ESOMEPRAZOLE. [Concomitant]
     Active Substance: ESOMEPRAZOLE MAGNESIUM
  4. MECIR [Concomitant]
     Active Substance: TAMSULOSIN HYDROCHLORIDE
  5. CLAVULANATE POTASSIUM [Concomitant]
     Active Substance: CLAVULANATE POTASSIUM
     Dosage: UNK
  6. ACIDE CLAVULANIQUE [Concomitant]
     Active Substance: CLAVULANIC ACID
     Dosage: UNK
  7. TAMSULOSINE [TAMSULOSIN] [Concomitant]
     Active Substance: TAMSULOSIN
  8. AUGMENTIN [Concomitant]
     Active Substance: AMOXICILLIN\CLAVULANATE POTASSIUM
  9. MAGNESIUM STEARATE [Concomitant]
     Active Substance: MAGNESIUM STEARATE
     Dosage: UNK
  10. SODIUM BENZOATE [Concomitant]
     Active Substance: SODIUM BENZOATE
  11. EXFORGE [Suspect]
     Active Substance: AMLODIPINE BESYLATE\VALSARTAN
     Indication: HYPERTENSION
     Dates: end: 20210511
  12. CROSPOVIDONE [Concomitant]
     Active Substance: CROSPOVIDONE
     Dosage: UNK
  13. ETHYLCELLULOSE [Concomitant]
     Dosage: UNK
  14. AMLODIPINE BESILATE [Concomitant]
     Active Substance: AMLODIPINE BESYLATE
     Dosage: UNK
  15. VALSARTAN. [Concomitant]
     Active Substance: VALSARTAN
  16. ASPARTAM [Concomitant]
     Active Substance: ASPARTAME
     Dosage: UNK
  17. ALLOPURINOL. [Suspect]
     Active Substance: ALLOPURINOL
     Indication: GOUT
     Route: 048
     Dates: end: 20210511
  18. XELODA [Suspect]
     Active Substance: CAPECITABINE
     Indication: ADENOCARCINOMA
     Route: 048
     Dates: start: 20210311, end: 20210505
  19. SILICEA [SILICON DIOXIDE, COLLOIDAL] [Concomitant]
     Dosage: UNK
  20. SUCCINIC ACID [Concomitant]
     Active Substance: SUCCINIC ACID
     Dosage: UNK
  21. ATENOLOL. [Concomitant]
     Active Substance: ATENOLOL
  22. MACROGOL 4000 [Concomitant]
     Active Substance: POLYETHYLENE GLYCOL 4000
     Dosage: UNK
  23. HYPROMELLOSE [Concomitant]
     Active Substance: HYPROMELLOSES
     Dosage: UNK
  24. TALC [Concomitant]
     Active Substance: TALC

REACTIONS (1)
  - Drug reaction with eosinophilia and systemic symptoms [Recovering/Resolving]

NARRATIVE: CASE EVENT DATE: 20210502
